FAERS Safety Report 10426578 (Version 1)
Quarter: 2014Q3

REPORT INFORMATION
  Report Type: Spontaneous
  Country: US (occurrence: None)
  Receive Date: 20140902
  Receipt Date: 20140902
  Transmission Date: 20150326
  Serious: Yes (Other)
  Sender: FDA-Public Use
  Company Number: None

PATIENT
  Age: 58 Year
  Sex: Female
  Weight: 69.85 kg

DRUGS (1)
  1. CRESTOR [Suspect]
     Active Substance: ROSUVASTATIN CALCIUM
     Indication: BLOOD CHOLESTEROL INCREASED
     Dosage: 1 DAILY ONCE DAILY TAKEN BY MOUTH
     Route: 048
     Dates: start: 20140715, end: 20140812

REACTIONS (4)
  - Rash pruritic [None]
  - Myalgia [None]
  - Skin burning sensation [None]
  - Arthralgia [None]

NARRATIVE: CASE EVENT DATE: 20140715
